FAERS Safety Report 7296837-4 (Version None)
Quarter: 2011Q1

REPORT INFORMATION
  Report Type: 
  Country: None (occurrence: None)
  Receive Date: 20110204
  Receipt Date: 20110124
  Transmission Date: 20110831
  Serious: Yes (Other)
  Sender: FDA-Public Use
  Company Number: B0697501A

PATIENT
  Age: 4 Year
  Sex: Female

DRUGS (2)
  1. CYCLOSPORINE [Suspect]
  2. ACYCLOVIR [Suspect]
     Indication: VARICELLA
     Dosage: INTRAVENOUS
     Route: 042

REACTIONS (3)
  - TUBULOINTERSTITIAL NEPHRITIS [None]
  - VARICELLA [None]
  - RENAL FAILURE ACUTE [None]
